FAERS Safety Report 8321543-4 (Version None)
Quarter: 2012Q2

REPORT INFORMATION
  Report Type: 
  Country: None (occurrence: None)
  Receive Date: 20120430
  Receipt Date: 20120424
  Transmission Date: 20120825
  Serious: Yes (Other)
  Sender: FDA-Public Use
  Company Number: US-PFIZER INC-2012101607

PATIENT
  Sex: Male
  Weight: 87.075 kg

DRUGS (5)
  1. LEVOTHYROXINE SODIUM [Suspect]
     Dosage: 0.125 MG, DAILY
     Dates: start: 20120401
  2. CALCIUM [Concomitant]
     Indication: BLOOD CALCIUM DECREASED
     Dosage: 600 MG, 3X/DAY
     Dates: start: 20120401
  3. LEVOTHYROXINE SODIUM [Suspect]
     Indication: THYROID DISORDER
     Dosage: UNK, DAILY
     Dates: start: 20120401, end: 20120401
  4. CENTRUM SILVER MEN'S 50+ [Suspect]
     Indication: VITAMIN SUPPLEMENTATION
     Dosage: UNK, DAILY
     Route: 048
     Dates: start: 20120422, end: 20120424
  5. LIPITOR [Concomitant]
     Indication: BLOOD CHOLESTEROL ABNORMAL
     Dosage: 10 MG, DAILY

REACTIONS (4)
  - NERVOUSNESS [None]
  - BLOOD PRESSURE INCREASED [None]
  - HEADACHE [None]
  - OVERDOSE [None]
